FAERS Safety Report 8275297-0 (Version None)
Quarter: 2012Q2

REPORT INFORMATION
  Report Type: 
  Country: None (occurrence: None)
  Receive Date: 20120411
  Receipt Date: 20120409
  Transmission Date: 20120825
  Serious: Yes (Other)
  Sender: FDA-Public Use
  Company Number: US-PFIZER INC-2012054125

PATIENT
  Sex: Male

DRUGS (3)
  1. LIPITOR [Suspect]
     Indication: MYOCARDIAL INFARCTION
     Dosage: UNK
  2. XANAX [Suspect]
     Dosage: UNK
  3. NITROSTAT [Suspect]
     Dosage: UNK

REACTIONS (5)
  - WEIGHT DECREASED [None]
  - EATING DISORDER [None]
  - BIPOLAR DISORDER [None]
  - HEADACHE [None]
  - PYREXIA [None]
